FAERS Safety Report 12694154 (Version 1)
Quarter: 2016Q3

REPORT INFORMATION
  Report Type: Spontaneous
  Country: US (occurrence: US)
  Receive Date: 20160829
  Receipt Date: 20160829
  Transmission Date: 20161109
  Serious: No
  Sender: FDA-Public Use
  Company Number: US-PFIZER INC-2016402649

PATIENT
  Age: 73 Year
  Sex: Male

DRUGS (2)
  1. CELEBREX [Suspect]
     Active Substance: CELECOXIB
     Indication: BACK PAIN
  2. CELEBREX [Suspect]
     Active Substance: CELECOXIB
     Indication: SACROILIITIS
     Dosage: 200 MG, 1X/DAY (200 MG IN THE MORNING)

REACTIONS (2)
  - Drug ineffective [Unknown]
  - Pain [Unknown]
